FAERS Safety Report 24962409 (Version 3)
Quarter: 2025Q1

REPORT INFORMATION
  Report Type: Spontaneous
  Country: US (occurrence: US)
  Receive Date: 20250212
  Receipt Date: 20250327
  Transmission Date: 20250409
  Serious: Yes (Other)
  Sender: UCB
  Company Number: US-UCBSA-2025007834

PATIENT
  Age: 43 Year
  Sex: Female

DRUGS (2)
  1. CIMZIA [Suspect]
     Active Substance: CERTOLIZUMAB PEGOL
     Indication: Ankylosing spondylitis
     Dosage: 200 MILLIGRAM, EV 2 WEEKS(QOW)
     Route: 058
     Dates: start: 202412
  2. CIMZIA [Suspect]
     Active Substance: CERTOLIZUMAB PEGOL
     Indication: Rheumatoid arthritis

REACTIONS (5)
  - Ankylosing spondylitis [Unknown]
  - Rheumatoid arthritis [Unknown]
  - Urticaria [Unknown]
  - Insomnia [Unknown]
  - Food craving [Unknown]

NARRATIVE: CASE EVENT DATE: 20250101
